FAERS Safety Report 8140301-7 (Version None)
Quarter: 2012Q1

REPORT INFORMATION
  Report Type: 
  Country: None (occurrence: None)
  Receive Date: 20120216
  Receipt Date: 20120208
  Transmission Date: 20120608
  Serious: No
  Sender: FDA-Public Use
  Company Number: US-PFIZER INC-2012038001

PATIENT
  Sex: Female

DRUGS (7)
  1. MULTI-VITAMINS [Concomitant]
  2. VITAMIN B COMPLEX CAP [Concomitant]
  3. MAGNESIUM [Concomitant]
  4. NORGESTREL AND ETHINYL ESTRADIOL [Suspect]
  5. NORGESTREL AND ETHINYL ESTRADIOL [Suspect]
  6. CALCIUM WITH VITAMIN D [Concomitant]
  7. CHROMIUM [Concomitant]

REACTIONS (1)
  - ABNORMAL WITHDRAWAL BLEEDING [None]
